FAERS Safety Report 6667743-0 (Version None)
Quarter: 2010Q1

REPORT INFORMATION
  Report Type: 
  Country: None (occurrence: None)
  Receive Date: 20100331
  Receipt Date: 20100318
  Transmission Date: 20100710
  Serious: Yes (Hospitalization)
  Sender: FDA-Public Use
  Company Number: 2010PV000008

PATIENT
  Sex: Male

DRUGS (1)
  1. DEPOCYT [Suspect]
     Indication: MULTIPLE MYELOMA

REACTIONS (3)
  - ARACHNOIDITIS [None]
  - PETIT MAL EPILEPSY [None]
  - STATUS EPILEPTICUS [None]
